FAERS Safety Report 16586201 (Version 1)
Quarter: 2019Q3

REPORT INFORMATION
  Report Type: Spontaneous
  Country: US (occurrence: US)
  Receive Date: 20190717
  Receipt Date: 20190717
  Transmission Date: 20191004
  Serious: Yes (Hospitalization)
  Sender: FDA-Public Use
  Company Number: US-ASTRAZENECA-2019SF00083

PATIENT
  Age: 56 Year
  Sex: Female
  Weight: 82.6 kg

DRUGS (5)
  1. LISINOPRIL. [Suspect]
     Active Substance: LISINOPRIL
     Indication: HYPERTENSION
     Route: 048
  2. LANTUS [Concomitant]
     Active Substance: INSULIN GLARGINE
  3. FARXIGA [Suspect]
     Active Substance: DAPAGLIFLOZIN PROPANEDIOL
     Route: 048
     Dates: start: 2017, end: 201810
  4. WARFARIN [Concomitant]
     Active Substance: WARFARIN
     Dosage: 4 TO 5 MG, DAILY
  5. WARFARIN [Concomitant]
     Active Substance: WARFARIN

REACTIONS (13)
  - Neuroma [Not Recovered/Not Resolved]
  - Stress [Unknown]
  - Headache [Not Recovered/Not Resolved]
  - Memory impairment [Unknown]
  - Ketoacidosis [Recovered/Resolved]
  - International normalised ratio increased [Unknown]
  - Plantar fasciitis [Unknown]
  - Feeling abnormal [Not Recovered/Not Resolved]
  - Pruritus [Unknown]
  - Mass [Not Recovered/Not Resolved]
  - Rash [Unknown]
  - Peripheral swelling [Not Recovered/Not Resolved]
  - Pain [Not Recovered/Not Resolved]

NARRATIVE: CASE EVENT DATE: 201709
